FAERS Safety Report 16723722 (Version 1)
Quarter: 2019Q3

REPORT INFORMATION
  Report Type: Spontaneous
  Country: GB (occurrence: GB)
  Receive Date: 20190821
  Receipt Date: 20190821
  Transmission Date: 20191005
  Serious: Yes (Other)
  Sender: FDA-Public Use
  Company Number: GB-LEO PHARMA-323699

PATIENT
  Age: 58 Year
  Sex: Female

DRUGS (4)
  1. DAIVOBET [Suspect]
     Active Substance: BETAMETHASONE DIPROPIONATE\CALCIPOTRIENE
     Indication: PSORIASIS
     Dosage: APPLICATION ONCE DAILY
     Route: 061
     Dates: start: 20190522, end: 20190529
  2. SEBCO [Concomitant]
     Indication: PRODUCT USED FOR UNKNOWN INDICATION
  3. BETNOVATE [Concomitant]
     Active Substance: BETAMETHASONE
     Indication: PRODUCT USED FOR UNKNOWN INDICATION
  4. EUMOVATE [Concomitant]
     Active Substance: CLOBETASONE BUTYRATE
     Indication: PRODUCT USED FOR UNKNOWN INDICATION

REACTIONS (2)
  - Depressed mood [Recovered/Resolved]
  - Tearfulness [Recovered/Resolved]

NARRATIVE: CASE EVENT DATE: 20190529
